FAERS Safety Report 8766728 (Version 1)
Quarter: 2012Q4

REPORT INFORMATION
  Report Type: 
  Country: DE (occurrence: FR)
  Receive Date: 20120904
  Receipt Date: 20120904
  Transmission Date: 20130627
  Serious: Yes (Hospitalization)
  Sender: FDA-Public Use
  Company Number: FR-BRISTOL-MYERS SQUIBB COMPANY-16910168

PATIENT
  Age: 66 Year
  Sex: Male
  Weight: 72 kg

DRUGS (21)
  1. GLUCOPHAGE XL [Suspect]
     Dosage: chronic treatment}10 years
     Route: 048
  2. DETICINE [Suspect]
     Indication: MALIGNANT MELANOMA
     Dosage: course:4 days,duration: 4 years
     Route: 042
     Dates: start: 19980713, end: 20020219
  3. FOTEMUSTINE [Suspect]
     Indication: MALIGNANT MELANOMA
     Route: 042
     Dates: start: 19990420, end: 19991213
  4. AMAREL [Suspect]
     Dosage: Chronic treatment}10 years,tabs
     Route: 048
  5. EFFEXOR [Suspect]
     Dosage: stopped
     Route: 048
  6. ZOVIRAX [Concomitant]
     Indication: HERPES ZOSTER
     Dates: start: 199911
  7. DAONIL [Concomitant]
     Dosage: stopped
     Dates: start: 2004
  8. MAXEPA [Concomitant]
     Dosage: stopped
     Dates: start: 2004
  9. LIPANTHYL [Concomitant]
     Dosage: stopped
     Dates: start: 2004
  10. ASPEGIC [Concomitant]
     Dates: start: 2004
  11. MYOLASTAN [Concomitant]
     Dosage: stopped
     Dates: start: 2004
  12. RIVOTRIL [Concomitant]
     Dosage: stopped
     Dates: start: 2004
  13. DEPAKOTE [Concomitant]
     Dosage: stopped
     Dates: start: 2004
  14. JANUVIA [Concomitant]
     Dates: start: 200906
  15. AVANDAMET [Concomitant]
     Dates: start: 200906
  16. CRESTOR [Concomitant]
     Dates: start: 200906
  17. KARDEGIC [Concomitant]
     Dosage: stopped
     Dates: start: 200906
  18. DIANTALVIC [Concomitant]
     Dosage: stopped
     Dates: start: 200906
  19. OMIX [Concomitant]
     Dates: start: 200906
  20. TOPALGIC [Concomitant]
     Dosage: stopped
     Dates: start: 200906
  21. PLAVIX [Concomitant]
     Dates: start: 200911

REACTIONS (4)
  - Aphasia [Recovered/Resolved]
  - Poverty of speech [Recovered/Resolved]
  - Disorientation [Recovered/Resolved]
  - Headache [Recovered/Resolved]
